FAERS Safety Report 21349600 (Version 1)
Quarter: 2022Q3

REPORT INFORMATION
  Report Type: Spontaneous
  Country: CA (occurrence: CA)
  Receive Date: 20220919
  Receipt Date: 20220919
  Transmission Date: 20221027
  Serious: Yes (Other)
  Sender: FDA-Public Use
  Company Number: CA-JNJFOC-20220928989

PATIENT
  Age: 47 Year
  Sex: Female

DRUGS (1)
  1. REMICADE [Suspect]
     Active Substance: INFLIXIMAB
     Indication: Ankylosing spondylitis
     Route: 041

REACTIONS (8)
  - Weight decreased [Unknown]
  - Aphonia [Unknown]
  - Oropharyngeal pain [Unknown]
  - Laryngitis [Unknown]
  - Nasal congestion [Unknown]
  - COVID-19 [Unknown]
  - Off label use [Unknown]
  - Intentional product use issue [Unknown]
